FAERS Safety Report 23137623 (Version 1)
Quarter: 2023Q4

REPORT INFORMATION
  Report Type: Spontaneous
  Country: US (occurrence: US)
  Receive Date: 20231102
  Receipt Date: 20231102
  Transmission Date: 20240110
  Serious: Yes (Other)
  Sender: FDA-Public Use
  Company Number: US-PURDUE PHARMA-USA-2023-0304588

PATIENT
  Sex: Female

DRUGS (2)
  1. OXYCONTIN [Suspect]
     Active Substance: OXYCODONE HYDROCHLORIDE
     Indication: Pain management
     Dosage: 280-80 MG EVERY MONTH OVER A YEAR
     Route: 048
  2. OXYCODONE HYDROCHLORIDE [Suspect]
     Active Substance: OXYCODONE HYDROCHLORIDE
     Indication: Pain management
     Dosage: 800-30MG EVERY MONTH FOR OVER A YEAR
     Route: 065

REACTIONS (8)
  - Overdose [Unknown]
  - Drug dependence [Unknown]
  - Injury [Unknown]
  - Depression [Unknown]
  - Drug diversion [Unknown]
  - Pain [Unknown]
  - Product prescribing issue [Unknown]
  - Emotional distress [Unknown]
